FAERS Safety Report 25078241 (Version 2)
Quarter: 2025Q1

REPORT INFORMATION
  Report Type: Report from Study
  Country: DE (occurrence: DE)
  Receive Date: 20250314
  Receipt Date: 20250319
  Transmission Date: 20250409
  Serious: Yes (Hospitalization, Other)
  Sender: ABBVIE
  Company Number: DE-JNJFOC-20250310928

PATIENT
  Age: 57 Year
  Sex: Male

DRUGS (6)
  1. IBRUTINIB [Suspect]
     Active Substance: IBRUTINIB
     Indication: Chronic lymphocytic leukaemia
     Route: 048
     Dates: start: 20241210
  2. IBRUTINIB [Suspect]
     Active Substance: IBRUTINIB
     Indication: Chronic lymphocytic leukaemia
     Route: 048
     Dates: start: 20250210
  3. DIMETHINDENE [Concomitant]
     Active Substance: DIMETHINDENE
     Indication: Prophylaxis
  4. BECLOMETHASONE DIPROPIONATE\FORMOTEROL FUMARATE [Concomitant]
     Active Substance: BECLOMETHASONE DIPROPIONATE\FORMOTEROL FUMARATE
     Indication: Asthma
  5. ALLOPURINOL [Concomitant]
     Active Substance: ALLOPURINOL
     Indication: Prophylaxis
     Dates: start: 20241210
  6. VENETOCLAX [Suspect]
     Active Substance: VENETOCLAX
     Indication: Chronic lymphocytic leukaemia
     Route: 048
     Dates: start: 20240210

REACTIONS (3)
  - Spinal pain [Recovering/Resolving]
  - Lumbar vertebral fracture [Unknown]
  - Osteoporosis [Unknown]

NARRATIVE: CASE EVENT DATE: 20250302
